FAERS Safety Report 18714190 (Version 1)
Quarter: 2021Q1

REPORT INFORMATION
  Report Type: Spontaneous
  Country: US (occurrence: US)
  Receive Date: 20210107
  Receipt Date: 20210107
  Transmission Date: 20210419
  Serious: No
  Sender: FDA-Public Use
  Company Number: US-ICU MEDICAL, INC.-ICU2020US00005

PATIENT

DRUGS (2)
  1. OXALIPLATIN. [Suspect]
     Active Substance: OXALIPLATIN
     Indication: COLON CANCER
     Dosage: 240 MILLIGRAM IN 500 ML 0.9% SODIUM CHLORIDE
     Route: 042
     Dates: start: 20200225, end: 20200225
  2. 0.9% SODIUM CHLORIDE INJECTION USP (500 ML) 2 PORT [Suspect]
     Active Substance: SODIUM CHLORIDE
     Indication: COLON CANCER
     Dosage: 500 MILLILITER
     Route: 042
     Dates: start: 20200225, end: 20200225

REACTIONS (2)
  - No adverse event [Unknown]
  - Product selection error [Recovered/Resolved]

NARRATIVE: CASE EVENT DATE: 20200225
